FAERS Safety Report 19078733 (Version 1)
Quarter: 2021Q1

REPORT INFORMATION
  Report Type: Spontaneous
  Country: BR (occurrence: BR)
  Receive Date: 20210331
  Receipt Date: 20210331
  Transmission Date: 20210420
  Serious: Yes (Hospitalization, Other)
  Sender: FDA-Public Use
  Company Number: BR-VALIDUS PHARMACEUTICALS LLC-BR-2021VAL000948

PATIENT
  Age: 29 Year
  Sex: Female

DRUGS (4)
  1. HYDRALAZINE [Suspect]
     Active Substance: HYDRALAZINE HYDROCHLORIDE
     Indication: CARDIAC FAILURE CONGESTIVE
     Dosage: UNK
     Route: 065
  2. PROPRANOLOL HYDROCHLORIDE. [Suspect]
     Active Substance: PROPRANOLOL HYDROCHLORIDE
     Indication: PRODUCT USED FOR UNKNOWN INDICATION
     Dosage: UNK
     Route: 065
  3. FUROSEMIDE. [Suspect]
     Active Substance: FUROSEMIDE
     Indication: CARDIAC FAILURE CONGESTIVE
     Dosage: UNK
     Route: 065
  4. NITROGLYCERIN. [Suspect]
     Active Substance: NITROGLYCERIN
     Indication: CARDIAC FAILURE CONGESTIVE
     Dosage: UNK
     Route: 065

REACTIONS (2)
  - Exposure during pregnancy [Unknown]
  - Aortic dissection [Recovered/Resolved]
